FAERS Safety Report 24133056 (Version 1)
Quarter: 2024Q3

REPORT INFORMATION
  Report Type: Spontaneous
  Country: US (occurrence: US)
  Receive Date: 20240724
  Receipt Date: 20240724
  Transmission Date: 20241016
  Serious: Yes (Other)
  Sender: LUPIN
  Company Number: US-LUPIN PHARMACEUTICALS INC.-2024-07035

PATIENT

DRUGS (3)
  1. LISINOPRIL [Suspect]
     Active Substance: LISINOPRIL
     Indication: Product used for unknown indication
     Dosage: UNK
     Route: 065
  2. LISINOPRIL [Suspect]
     Active Substance: LISINOPRIL
     Indication: Product used for unknown indication
     Dosage: UNK
     Route: 065
  3. LOSARTAN [Concomitant]
     Active Substance: LOSARTAN
     Indication: Blood pressure measurement
     Dosage: UNK
     Route: 065

REACTIONS (5)
  - Pruritus [Unknown]
  - Eye swelling [Unknown]
  - Eye pruritus [Unknown]
  - Dyspnoea [Unknown]
  - Chest discomfort [Unknown]
